FAERS Safety Report 7097942-8 (Version None)
Quarter: 2010Q4

REPORT INFORMATION
  Report Type: 
  Country: None (occurrence: None)
  Receive Date: 20101104
  Receipt Date: 20101025
  Transmission Date: 20110411
  Serious: Yes (Life-Threatening, Hospitalization)
  Sender: FDA-Public Use
  Company Number: OSCN-NO-1010S-0268

PATIENT
  Sex: Male

DRUGS (1)
  1. OMNISCAN [Suspect]
     Indication: PRODUCT USED FOR UNKNOWN INDICATION
     Dosage: NR, SINGLE DOSE, I.T.
     Route: 042
     Dates: start: 20101018, end: 20101018

REACTIONS (3)
  - COMA [None]
  - OFF LABEL USE [None]
  - RENAL FAILURE [None]
